FAERS Safety Report 5619256-2 (Version None)
Quarter: 2008Q1

REPORT INFORMATION
  Report Type: 
  Country: None (occurrence: None)
  Receive Date: 20080205
  Receipt Date: 20080123
  Transmission Date: 20080703
  Serious: Yes (Other)
  Sender: FDA-Public Use
  Company Number: E2020-02049-SPO-JP

PATIENT
  Age: 82 Year
  Sex: Male

DRUGS (11)
  1. ARICEPT [Suspect]
     Indication: DEMENTIA ALZHEIMER'S TYPE
     Dosage: 3 MG, 1 IN 1 D, ORAL, 5 MG, 1 IN 1 D, ORAL, 3 MG, 1 IN 1 D, ORAL
     Route: 048
     Dates: start: 20071130, end: 20071213
  2. ARICEPT [Suspect]
     Indication: DEMENTIA ALZHEIMER'S TYPE
     Dosage: 3 MG, 1 IN 1 D, ORAL, 5 MG, 1 IN 1 D, ORAL, 3 MG, 1 IN 1 D, ORAL
     Route: 048
     Dates: start: 20071214, end: 20071218
  3. ARICEPT [Suspect]
     Indication: DEMENTIA ALZHEIMER'S TYPE
     Dosage: 3 MG, 1 IN 1 D, ORAL, 5 MG, 1 IN 1 D, ORAL, 3 MG, 1 IN 1 D, ORAL
     Route: 048
     Dates: start: 20071219
  4. ALMARL (AROTINOLOL HYDROCHLORIDE) [Suspect]
     Indication: HYPERTENSION
     Dosage: 5 MG, 1 IN 1 D, ORAL
     Route: 048
     Dates: start: 20071001, end: 20071219
  5. LOCHOL (FLUVASTATIN SODIUM) [Concomitant]
  6. CEPHADOL (DIFENIDOL HYDROCHLORIDE) [Concomitant]
  7. ADETPHOS (ADENOSINE TRIPHOSPHATE, DISODIUM SALT) [Concomitant]
  8. ALMARL (AROTINOLOL HYDROCHLORIDE) [Concomitant]
  9. BUFFERIN [Concomitant]
  10. FAMOTIDINE [Concomitant]
  11. DORNER (BERAPROST SODIUM) [Concomitant]

REACTIONS (1)
  - SHOCK [None]
